FAERS Safety Report 10018979 (Version 2)
Quarter: 2014Q2

REPORT INFORMATION
  Report Type: Spontaneous
  Country: FR (occurrence: FR)
  Receive Date: 20140318
  Receipt Date: 20140401
  Transmission Date: 20141212
  Serious: Yes (Life-Threatening, Hospitalization)
  Sender: FDA-Public Use
  Company Number: FR-GLAXOSMITHKLINE-B0976078A

PATIENT
  Age: 87 Year
  Sex: Female

DRUGS (2)
  1. ZOVIRAX [Suspect]
     Indication: ENCEPHALITIS
     Dosage: 10MGK THREE TIMES PER DAY
     Route: 042
     Dates: start: 20140227, end: 20140228
  2. AMOXICILLIN [Concomitant]
     Dosage: 200MGK PER DAY
     Route: 042
     Dates: start: 20140227

REACTIONS (2)
  - Renal failure acute [Recovered/Resolved]
  - Coma [Recovered/Resolved]
